FAERS Safety Report 14438297 (Version 2)
Quarter: 2018Q1

REPORT INFORMATION
  Report Type: Spontaneous
  Country: ES (occurrence: ES)
  Receive Date: 20180125
  Receipt Date: 20180219
  Transmission Date: 20180509
  Serious: Yes (Death)
  Sender: FDA-Public Use
  Company Number: ES-BAYER-2017-036871

PATIENT
  Age: 73 Year
  Sex: Male

DRUGS (3)
  1. NEXAVAR [Suspect]
     Active Substance: SORAFENIB
     Indication: HEPATOCELLULAR CARCINOMA
     Dosage: 200 MG, BID
     Dates: end: 200810
  2. NEXAVAR [Suspect]
     Active Substance: SORAFENIB
     Indication: HEPATOCELLULAR CARCINOMA
     Dosage: 400 MG, BID
  3. NEXAVAR [Suspect]
     Active Substance: SORAFENIB
     Indication: HEPATOCELLULAR CARCINOMA
     Dosage: 400 MG, BID
     Dates: start: 200809, end: 2008

REACTIONS (10)
  - Pulmonary cavitation [Fatal]
  - Respiratory tract infection [Fatal]
  - Hepatocellular carcinoma [Fatal]
  - Metastases to lung [Fatal]
  - Lung disorder [Fatal]
  - Haemoptysis [Fatal]
  - Decreased appetite [Unknown]
  - Cough [Not Recovered/Not Resolved]
  - Asthenia [Unknown]
  - Lung infection [Fatal]

NARRATIVE: CASE EVENT DATE: 2008
